FAERS Safety Report 14146587 (Version 3)
Quarter: 2017Q4

REPORT INFORMATION
  Report Type: Spontaneous
  Country: DE (occurrence: None)
  Receive Date: 20171031
  Receipt Date: 20171031
  Transmission Date: 20180321
  Serious: Yes (Other)
  Sender: FDA-Public Use
  Company Number: MERZ NORTH AMERICA, INC.-17MRZ-00323

PATIENT
  Age: 50 Year
  Sex: Female

DRUGS (1)
  1. XEOMIN [Suspect]
     Active Substance: INCOBOTULINUMTOXINA
     Indication: BLEPHAROSPASM
     Dosage: 30 IU, 1 IN 1 TOTAL

REACTIONS (1)
  - Angle closure glaucoma [Unknown]
